FAERS Safety Report 11977817 (Version 1)
Quarter: 2016Q1

REPORT INFORMATION
  Report Type: Spontaneous
  Country: CN (occurrence: CN)
  Receive Date: 20160129
  Receipt Date: 20160129
  Transmission Date: 20160526
  Serious: Yes (Other)
  Sender: FDA-Public Use
  Company Number: CN-JNJFOC-20160121309

PATIENT
  Age: 34 Year
  Sex: Female

DRUGS (1)
  1. INVEGA [Suspect]
     Active Substance: PALIPERIDONE
     Indication: SCHIZOPHRENIA
     Dosage: 3MG+6MG
     Route: 048
     Dates: start: 2015

REACTIONS (7)
  - Schizophrenia [Unknown]
  - Alanine aminotransferase increased [Recovering/Resolving]
  - Bradyphrenia [Recovering/Resolving]
  - Aspartate aminotransferase increased [Recovering/Resolving]
  - Slow response to stimuli [Recovering/Resolving]
  - Skin discolouration [Recovering/Resolving]
  - Therapy cessation [Unknown]

NARRATIVE: CASE EVENT DATE: 20150811
